FAERS Safety Report 26125358 (Version 1)
Quarter: 2025Q4

REPORT INFORMATION
  Report Type: Spontaneous
  Country: US (occurrence: None)
  Receive Date: 20251205
  Receipt Date: 20251205
  Transmission Date: 20260118
  Serious: Yes (Hospitalization)
  Sender: FDA-CTU
  Company Number: None

PATIENT
  Age: 58 Year
  Sex: Female
  Weight: 60.3 kg

DRUGS (6)
  1. CYCLOPHOSPHAMIDE [Suspect]
     Active Substance: CYCLOPHOSPHAMIDE
     Dates: end: 20250912
  2. CYTARABINE [Suspect]
     Active Substance: CYTARABINE
     Dates: end: 20250910
  3. DEXAMETHASONE [Suspect]
     Active Substance: DEXAMETHASONE
     Dates: end: 20250912
  4. DOXORUBICIN HYDROCHLORIDE [Suspect]
     Active Substance: DOXORUBICIN HYDROCHLORIDE
     Dates: end: 20250912
  5. METHOTREXATE [Suspect]
     Active Substance: METHOTREXATE
     Dosage: OTHER FREQUENCY : DRUG DELAYED ;?
     Dates: end: 20250924
  6. VINCRISTINE SULFATE [Suspect]
     Active Substance: VINCRISTINE SULFATE
     Dosage: OTHER FREQUENCY : SKIP THE 2ND DOSE SCHEDULED ON DAY 11 ;?
     Dates: end: 20250912

REACTIONS (7)
  - Non-cardiac chest pain [None]
  - Febrile neutropenia [None]
  - Constipation [None]
  - Abdominal pain [None]
  - Gastrointestinal infection [None]
  - Post procedural infection [None]
  - Therapy interrupted [None]

NARRATIVE: CASE EVENT DATE: 20250916
